FAERS Safety Report 24736181 (Version 1)
Quarter: 2024Q4

REPORT INFORMATION
  Report Type: Spontaneous
  Country: CA (occurrence: CA)
  Receive Date: 20241216
  Receipt Date: 20241216
  Transmission Date: 20250115
  Serious: Yes (Other)
  Sender: AUROBINDO
  Company Number: CA-MLMSERVICE-20241125-PI268737-00281-1

PATIENT
  Age: 43 Year
  Sex: Female

DRUGS (4)
  1. REPAGLINIDE [Interacting]
     Active Substance: DULOXETINE HYDROCHLORIDE\REPAGLINIDE\TICAGRELOR
     Indication: Cystic fibrosis related diabetes
     Dosage: MAXIMUM DOSE.
     Route: 065
     Dates: start: 2023
  2. REPAGLINIDE [Interacting]
     Active Substance: DULOXETINE HYDROCHLORIDE\REPAGLINIDE\TICAGRELOR
     Dosage: STARTED LOW-DOSE, IN APRIL 2023, ON REPAGLINIDE 8 TO 12 MG PER DAY
     Route: 065
     Dates: start: 202304, end: 2023
  3. ELEXACAFTOR\IVACAFTOR\TEZACAFTOR [Interacting]
     Active Substance: ELEXACAFTOR\IVACAFTOR\TEZACAFTOR
     Indication: Pulmonary function test decreased
     Dosage: 1 PILL DAILY DUE TO PATIENT PREFERENCE
     Route: 065
     Dates: start: 202212
  4. ELEXACAFTOR\IVACAFTOR\TEZACAFTOR [Interacting]
     Active Substance: ELEXACAFTOR\IVACAFTOR\TEZACAFTOR
     Dosage: INCREASED TO 2 PILLS DAILY
     Route: 065
     Dates: start: 202302

REACTIONS (2)
  - Hypertransaminasaemia [Recovered/Resolved]
  - Drug interaction [Recovered/Resolved]
